FAERS Safety Report 17274001 (Version 3)
Quarter: 2020Q1

REPORT INFORMATION
  Report Type: Report from Study
  Country: EG (occurrence: EG)
  Receive Date: 20200115
  Receipt Date: 20200204
  Transmission Date: 20200409
  Serious: Yes (Death, Other)
  Sender: FDA-Public Use
  Company Number: EG-JNJFOC-20200115495

PATIENT
  Age: 50 Year
  Sex: Male

DRUGS (1)
  1. DARZALEX [Suspect]
     Active Substance: DARATUMUMAB
     Indication: PLASMA CELL MYELOMA
     Route: 065
     Dates: start: 20180901

REACTIONS (2)
  - Death [Fatal]
  - Drug ineffective [Unknown]
